FAERS Safety Report 4738740-7 (Version None)
Quarter: 2005Q3

REPORT INFORMATION
  Report Type: 
  Country: None (occurrence: None)
  Receive Date: 20050808
  Receipt Date: 20050808
  Transmission Date: 20060218
  Serious: Yes (Hospitalization)
  Sender: FDA-Public Use
  Company Number: None

PATIENT
  Age: 86 Year
  Sex: Male
  Weight: 59.4212 kg

DRUGS (1)
  1. MOXIFLOXACIN    400MG [Suspect]
     Indication: PNEUMONIA
     Dosage: 400 MG   DAILY   ORAL
     Route: 048
     Dates: start: 20050713, end: 20050722

REACTIONS (1)
  - DIARRHOEA [None]
